FAERS Safety Report 18089987 (Version 4)
Quarter: 2020Q4

REPORT INFORMATION
  Report Type: Spontaneous
  Country: CZ (occurrence: CZ)
  Receive Date: 20200730
  Receipt Date: 20201009
  Transmission Date: 20210113
  Serious: Yes (Other)
  Sender: FDA-Public Use
  Company Number: CZ-AUROBINDO-AUR-APL-2020-036834

PATIENT
  Age: 47 Year
  Sex: Male

DRUGS (13)
  1. METFORMIN [Suspect]
     Active Substance: METFORMIN HYDROCHLORIDE
     Indication: TYPE 2 DIABETES MELLITUS
     Dosage: 2000 MILLIGRAM, ONCE A DAY
     Route: 048
     Dates: start: 200805
  2. METFORMIN [Suspect]
     Active Substance: METFORMIN HYDROCHLORIDE
     Dosage: 2000 MILLIGRAM, ONCE A DAY
     Route: 048
     Dates: start: 201907
  3. INSULIN [Concomitant]
     Active Substance: INSULIN NOS
     Indication: PRODUCT USED FOR UNKNOWN INDICATION
     Dosage: UNK
     Route: 065
  4. INSULIN GLARGINE [Suspect]
     Active Substance: INSULIN GLARGINE
     Indication: TYPE 2 DIABETES MELLITUS
     Dosage: 12 INTERNATIONAL UNIT, ONCE A DAY
     Route: 058
     Dates: start: 201405, end: 201806
  5. EMPAGLIFLOZIN [Concomitant]
     Active Substance: EMPAGLIFLOZIN
     Indication: PRODUCT USED FOR UNKNOWN INDICATION
     Dosage: UNK
     Route: 065
  6. PIOGLITAZON [Suspect]
     Active Substance: PIOGLITAZONE HYDROCHLORIDE
     Indication: TYPE 2 DIABETES MELLITUS
     Dosage: 30 MILLIGRAM, ONCE A DAY
     Route: 048
     Dates: start: 201104, end: 201108
  7. SAXAGLIPTIN [Concomitant]
     Active Substance: SAXAGLIPTIN
     Indication: PRODUCT USED FOR UNKNOWN INDICATION
     Dosage: UNK
     Route: 065
  8. INSULIN ASPART [Suspect]
     Active Substance: INSULIN ASPART
     Indication: TYPE 2 DIABETES MELLITUS
     Dosage: 8 INTERNATIONAL UNIT, 3 TIMES A DAY
     Route: 058
     Dates: start: 201405, end: 201806
  9. INSULIN GLARGINE [Suspect]
     Active Substance: INSULIN GLARGINE
     Dosage: 60 INTERNATIONAL UNIT, ONCE A DAY
     Route: 065
     Dates: start: 201806
  10. METFORMIN [Suspect]
     Active Substance: METFORMIN HYDROCHLORIDE
     Dosage: 2000 MILLIGRAM, ONCE A DAY  (REGIMEN MEASURES WITH GRADUAL TITRATION)
     Route: 065
     Dates: start: 200805, end: 201104
  11. GLICLAZIDE [Suspect]
     Active Substance: GLICLAZIDE
     Indication: TYPE 2 DIABETES MELLITUS
     Dosage: 30 MILLIGRAM, ONCE A DAY
     Route: 048
     Dates: start: 201108, end: 201310
  12. LISPRO INSULIN [Concomitant]
     Active Substance: INSULIN LISPRO
     Indication: TYPE 2 DIABETES MELLITUS
     Dosage: 18 INTERNATIONAL UNIT, 3 TIMES A DAY
     Route: 065
     Dates: start: 201907
  13. DULAGLUTIDE. [Concomitant]
     Active Substance: DULAGLUTIDE
     Indication: TYPE 2 DIABETES MELLITUS
     Dosage: 1.5 MILLIGRAM, EVERY WEEK (0.75/1.5 MG, QW)
     Route: 065
     Dates: start: 201907

REACTIONS (5)
  - Therapeutic product effect incomplete [Unknown]
  - Diabetes mellitus inadequate control [Unknown]
  - Diabetic metabolic decompensation [Recovered/Resolved]
  - Hypoglycaemia [Recovered/Resolved]
  - Weight increased [Recovered/Resolved]

NARRATIVE: CASE EVENT DATE: 201104
